FAERS Safety Report 16538551 (Version 1)
Quarter: 2019Q3

REPORT INFORMATION
  Report Type: Spontaneous
  Country: US (occurrence: US)
  Receive Date: 20190524
  Receipt Date: 20190524
  Transmission Date: 20191004
  Serious: Yes (Disabling, Other)
  Sender: FDA-Public Use
  Company Number: None

PATIENT
  Age: 75 Year
  Sex: Male
  Weight: 79.83 kg

DRUGS (7)
  1. BRILINTA [Suspect]
     Active Substance: TICAGRELOR
     Indication: PROPHYLAXIS
     Dosage: ?          QUANTITY:90 MG MILLIGRAM(S);?
     Route: 048
  2. HUMALOG [Concomitant]
     Active Substance: INSULIN LISPRO
  3. LANTUS [Concomitant]
     Active Substance: INSULIN GLARGINE
  4. COQ10 [Concomitant]
     Active Substance: UBIDECARENONE
  5. CINAMMON [Concomitant]
  6. MULTI-VITAMS [Concomitant]
  7. ASPIRIN 81MG [Concomitant]
     Active Substance: ASPIRIN

REACTIONS (5)
  - Dyspnoea [None]
  - Cardiomegaly [None]
  - Myalgia [None]
  - Oxygen saturation decreased [None]
  - Muscle injury [None]

NARRATIVE: CASE EVENT DATE: 201809
